FAERS Safety Report 23468569 (Version 1)
Quarter: 2024Q1

REPORT INFORMATION
  Report Type: Spontaneous
  Country: US (occurrence: None)
  Receive Date: 20240201
  Receipt Date: 20240201
  Transmission Date: 20240410
  Serious: Yes (Other)
  Sender: FDA-Public Use
  Company Number: None

PATIENT
  Age: 21 Year
  Sex: Female
  Weight: 72.6 kg

DRUGS (7)
  1. BLINCYTO [Suspect]
     Active Substance: BLINATUMOMAB
     Indication: Acute lymphocytic leukaemia
     Dosage: FREQUENCY : DAILY;?
     Route: 041
     Dates: start: 20240119, end: 20240127
  2. RYLAZE [Suspect]
     Active Substance: ASPARAGINASE ERWINIA CHRYSANTHEMI (RECOMBINANT)-RYWN
     Dates: start: 20240111, end: 20240128
  3. GABAPENTIN [Concomitant]
     Active Substance: GABAPENTIN
     Dates: start: 20240111, end: 20240128
  4. APIXABAN [Concomitant]
     Active Substance: APIXABAN
     Dates: start: 20240111
  5. CELEBREX [Concomitant]
     Active Substance: CELECOXIB
     Dates: start: 20240117
  6. METHADONE [Concomitant]
     Active Substance: METHADONE HYDROCHLORIDE
     Dates: start: 20240117
  7. DEXAMETHASONE [Concomitant]
     Active Substance: DEXAMETHASONE
     Dates: start: 20240119

REACTIONS (9)
  - Rash [None]
  - Infusion related reaction [None]
  - Cerebrovascular accident [None]
  - Face oedema [None]
  - Pruritus [None]
  - Erythema [None]
  - Skin burning sensation [None]
  - Hallucination [None]
  - Headache [None]

NARRATIVE: CASE EVENT DATE: 20240127
